FAERS Safety Report 6604172-X (Version None)
Quarter: 2010Q1

REPORT INFORMATION
  Report Type: 
  Country: None (occurrence: None)
  Receive Date: 20100226
  Receipt Date: 20090618
  Transmission Date: 20100710
  Serious: No
  Sender: FDA-Public Use
  Company Number: A0792261A

PATIENT
  Age: 66 Year
  Sex: Female

DRUGS (3)
  1. LAMICTAL CD [Suspect]
     Indication: MOOD SWINGS
     Dosage: 100MG PER DAY
     Route: 048
     Dates: start: 20080601
  2. EFFEXOR [Concomitant]
  3. KLONOPIN [Concomitant]

REACTIONS (1)
  - WEIGHT INCREASED [None]
